FAERS Safety Report 9142536 (Version 1)
Quarter: 2013Q1

REPORT INFORMATION
  Report Type: Spontaneous
  Country: CY (occurrence: CY)
  Receive Date: 20130306
  Receipt Date: 20130306
  Transmission Date: 20140127
  Serious: Yes (Hospitalization)
  Sender: FDA-Public Use
  Company Number: CY-009507513-1303CYP002105

PATIENT
  Age: 63 Year
  Sex: Female

DRUGS (1)
  1. INEGY [Suspect]
     Dosage: UNK
     Dates: start: 20130208, end: 2013

REACTIONS (3)
  - Syncope [Recovered/Resolved]
  - Myalgia [Recovered/Resolved]
  - Fatigue [Recovered/Resolved]
